FAERS Safety Report 8987028 (Version 1)
Quarter: 2012Q4

REPORT INFORMATION
  Report Type: Spontaneous
  Country: US (occurrence: None)
  Receive Date: 20121217
  Receipt Date: 20121217
  Transmission Date: 20130627
  Serious: Yes (Death)
  Sender: FDA-Public Use
  Company Number: 2012-21706

PATIENT
  Age: 40 Year
  Sex: Male

DRUGS (5)
  1. PROMETHAZINE [Suspect]
     Indication: DRUG USE FOR UNKNOWN INDICATION
  2. OXYCODONE [Suspect]
  3. LORAZEPAM [Suspect]
  4. METHADONE [Suspect]
  5. DULOXETINE [Suspect]

REACTIONS (1)
  - Toxicity to various agents [None]
